FAERS Safety Report 26074582 (Version 1)
Quarter: 2025Q4

REPORT INFORMATION
  Report Type: Spontaneous
  Country: US (occurrence: None)
  Receive Date: 20251120
  Receipt Date: 20251120
  Transmission Date: 20260118
  Serious: No
  Sender: FDA-CTU
  Company Number: None

PATIENT
  Age: 41 Year
  Sex: Female
  Weight: 99.79 kg

DRUGS (12)
  1. ARIPIPRAZOLE [Suspect]
     Active Substance: ARIPIPRAZOLE
     Indication: Depression
     Dates: start: 20220401, end: 20220525
  2. ARIPIPRAZOLE [Suspect]
     Active Substance: ARIPIPRAZOLE
     Indication: Anxiety
  3. SERTRALINE [Concomitant]
     Active Substance: SERTRALINE HYDROCHLORIDE
  4. amphetamine mix IR [Concomitant]
  5. CLONAZEPAM [Concomitant]
     Active Substance: CLONAZEPAM
  6. abetalol [Concomitant]
  7. METHYLPREDNISOLONE [Concomitant]
     Active Substance: METHYLPREDNISOLONE
  8. ESTRADIOL [Concomitant]
     Active Substance: ESTRADIOL
  9. PROGESTERONE [Concomitant]
     Active Substance: PROGESTERONE
  10. INSULIN NOS [Concomitant]
     Active Substance: INSULIN NOS
  11. ONDANESTRON [Concomitant]
  12. SUCRALFATE [Concomitant]
     Active Substance: SUCRALFATE

REACTIONS (7)
  - Gestational diabetes [None]
  - Gestational hypertension [None]
  - Pregnancy [None]
  - Maternal drugs affecting foetus [None]
  - Exposure during pregnancy [None]
  - Nausea [None]
  - Vomiting [None]

NARRATIVE: CASE EVENT DATE: 20220513
